FAERS Safety Report 14431628 (Version 1)
Quarter: 2018Q1

REPORT INFORMATION
  Report Type: Spontaneous
  Country: US (occurrence: US)
  Receive Date: 20180124
  Receipt Date: 20180124
  Transmission Date: 20180509
  Serious: Yes (Other)
  Sender: FDA-Public Use
  Company Number: US-ROCHE-2033363

PATIENT
  Age: 9 Year
  Sex: Male

DRUGS (6)
  1. ACTEMRA [Suspect]
     Active Substance: TOCILIZUMAB
     Indication: CYTOKINE RELEASE SYNDROME
     Route: 065
     Dates: start: 20140119
  2. TISAGENLECLEUCEL. [Suspect]
     Active Substance: TISAGENLECLEUCEL
     Indication: ACUTE LYMPHOCYTIC LEUKAEMIA
     Dosage: UNCERTAINTY?5.41X107 CTL019 TRANSDUCED CELLS
     Route: 065
     Dates: start: 20140114
  3. TISAGENLECLEUCEL. [Suspect]
     Active Substance: TISAGENLECLEUCEL
     Dosage: UNCERTAINTY?1.62X108 CTL019 TRANSDUCED CELLS
     Route: 065
     Dates: start: 20140521
  4. FLUDARABINE [Concomitant]
     Active Substance: FLUDARABINE PHOSPHATE
     Dosage: CUMULATIVE DOSE: 148 MG
     Route: 065
     Dates: start: 20140106, end: 20140109
  5. HYDROXYUREA. [Concomitant]
     Active Substance: HYDROXYUREA
     Dosage: CUMULATIVE DOSE: 500 MG
     Route: 065
     Dates: start: 20131204, end: 201401
  6. CYCLOPHOSPHAMIDE. [Concomitant]
     Active Substance: CYCLOPHOSPHAMIDE
     Dosage: CUMULATIVE DOSE: 1220 MG
     Route: 065
     Dates: start: 20140106, end: 20140107

REACTIONS (11)
  - Metabolic acidosis [Recovered/Resolved]
  - White blood cell count decreased [Recovered/Resolved]
  - Lymphopenia [Recovered/Resolved]
  - Headache [Recovered/Resolved]
  - International normalised ratio increased [Recovered/Resolved]
  - Acute respiratory distress syndrome [Recovered/Resolved]
  - Hypofibrinogenaemia [Recovered/Resolved]
  - Acute kidney injury [Recovered/Resolved]
  - Hypotension [Recovered/Resolved]
  - Febrile neutropenia [Recovered/Resolved]
  - Neutrophil count decreased [Recovered/Resolved]

NARRATIVE: CASE EVENT DATE: 20140119
